FAERS Safety Report 23369514 (Version 2)
Quarter: 2024Q1

REPORT INFORMATION
  Report Type: Spontaneous
  Country: US (occurrence: None)
  Receive Date: 20240105
  Receipt Date: 20240118
  Transmission Date: 20240410
  Serious: No
  Sender: FDA-Public Use
  Company Number: 2024A002384

PATIENT
  Sex: Male

DRUGS (1)
  1. FARXIGA [Suspect]
     Active Substance: DAPAGLIFLOZIN PROPANEDIOL
     Indication: Renal disorder
     Route: 048

REACTIONS (4)
  - Rash [Unknown]
  - Glucose tolerance impaired [Unknown]
  - Off label use [Unknown]
  - Product lot number issue [Unknown]
